FAERS Safety Report 15628389 (Version 1)
Quarter: 2018Q4

REPORT INFORMATION
  Report Type: Spontaneous
  Country: RU (occurrence: RU)
  Receive Date: 20181116
  Receipt Date: 20181116
  Transmission Date: 20190205
  Serious: Yes (Hospitalization)
  Sender: FDA-Public Use
  Company Number: RU-ASTRAZENECA-2018SF50007

PATIENT
  Age: 65 Year
  Sex: Male

DRUGS (1)
  1. SYMBICORT [Suspect]
     Active Substance: BUDESONIDE\FORMOTEROL FUMARATE DIHYDRATE
     Indication: ASTHMA
     Dosage: 160\4,5 MCG, 2 INHALATIONS, TWO TIMES A DAY
     Route: 055

REACTIONS (2)
  - Asthma [Recovered/Resolved]
  - Intentional product misuse [Unknown]
